FAERS Safety Report 8368036-6 (Version None)
Quarter: 2012Q2

REPORT INFORMATION
  Report Type: 
  Country: None (occurrence: None)
  Receive Date: 20120517
  Receipt Date: 20120501
  Transmission Date: 20120825
  Serious: Yes (Hospitalization)
  Sender: FDA-Public Use
  Company Number: US-BAXTER-2012BAX002927

PATIENT
  Sex: Male

DRUGS (1)
  1. DIANEAL PD-2 W/ DEXTROSE 1.5% [Suspect]
     Indication: PERITONEAL DIALYSIS
     Route: 033
     Dates: end: 20120409

REACTIONS (7)
  - PERITONEAL DISORDER [None]
  - CONSTIPATION [None]
  - PERITONITIS BACTERIAL [None]
  - SCROTAL SWELLING [None]
  - ABDOMINAL DISTENSION [None]
  - MUSCULOSKELETAL PAIN [None]
  - PERITONEAL DIALYSIS COMPLICATION [None]
